FAERS Safety Report 5260448-2 (Version None)
Quarter: 2007Q1

REPORT INFORMATION
  Report Type: 
  Country: None (occurrence: None)
  Receive Date: 20070309
  Receipt Date: 20060911
  Transmission Date: 20070707
  Serious: No
  Sender: FDA-Public Use
  Company Number: 2006-02862

PATIENT
  Age: 42 Year
  Sex: Male
  Weight: 86.4 kg

DRUGS (1)
  1. NICORETTE [Suspect]
     Indication: DRUG USE FOR UNKNOWN INDICATION
     Route: 002
     Dates: start: 20060401, end: 20060706

REACTIONS (1)
  - ADVERSE EVENT [None]
